FAERS Safety Report 5088719-3 (Version None)
Quarter: 2006Q3

REPORT INFORMATION
  Report Type: 
  Country: None (occurrence: None)
  Receive Date: 20060825
  Receipt Date: 20060807
  Transmission Date: 20061208
  Serious: Yes (Hospitalization, Other)
  Sender: FDA-Public Use
  Company Number: US-GLAXOSMITHKLINE-A0615619A

PATIENT
  Sex: Female
  Weight: 54.5 kg

DRUGS (4)
  1. LAMICTAL [Suspect]
     Indication: BIPOLAR DISORDER
     Dosage: 100MG PER DAY
     Route: 048
     Dates: start: 20050101
  2. CYMBALTA [Suspect]
     Indication: BIPOLAR DISORDER
     Route: 048
     Dates: start: 20060718, end: 20060727
  3. EFFEXOR [Concomitant]
     Indication: BIPOLAR DISORDER
     Route: 048
     Dates: start: 20050101
  4. SEROQUEL [Concomitant]
     Indication: BIPOLAR DISORDER
     Dosage: 600MG AT NIGHT
     Route: 048

REACTIONS (3)
  - DRUG INTERACTION [None]
  - ORAL SOFT TISSUE DISORDER [None]
  - SKIN LESION [None]
